FAERS Safety Report 9147809 (Version 1)
Quarter: 2013Q1

REPORT INFORMATION
  Report Type: Spontaneous
  Country: IT (occurrence: IT)
  Receive Date: 20130307
  Receipt Date: 20130307
  Transmission Date: 20140127
  Serious: Yes (Other)
  Sender: FDA-Public Use
  Company Number: IT-PFIZER INC-2013021957

PATIENT
  Age: 59 Year
  Sex: Male

DRUGS (7)
  1. PANTOPRAZOLE [Suspect]
     Indication: GASTRITIS PROPHYLAXIS
     Dosage: 20 MG, DAILY
     Route: 048
     Dates: start: 20120907, end: 20130110
  2. PLAVIX [Suspect]
     Indication: ACUTE MYOCARDIAL INFARCTION
     Dosage: 75 MG, UNK
     Route: 048
     Dates: start: 20120907, end: 20121211
  3. OLPRESS (OLMESARTAN MEDOXOMIL) (TABLET) (OLMESARTAN MEDOXOMIL) [Suspect]
     Indication: ACUTE MYOCARDIAL INFARCTION
     Dosage: 40 MG, UNK
     Route: 048
     Dates: start: 20120907, end: 20121211
  4. CARDIOASPIRIN [Concomitant]
     Dosage: 100 MG, UNK
  5. CONGESCOR [Concomitant]
     Dosage: 2.5 MG, UNK
  6. PROVISACOR [Concomitant]
     Dosage: 10 MG, UNK
  7. ESKIM [Concomitant]
     Dosage: 1000 MG, UNK

REACTIONS (2)
  - Melaena [Not Recovered/Not Resolved]
  - Diarrhoea [Not Recovered/Not Resolved]
